FAERS Safety Report 9185293 (Version 1)
Quarter: 2013Q1

REPORT INFORMATION
  Report Type: Spontaneous
  Country: DE (occurrence: DE)
  Receive Date: 20130325
  Receipt Date: 20130325
  Transmission Date: 20140127
  Serious: Yes (Other)
  Sender: FDA-Public Use
  Company Number: DE-B.I. PHARMACEUTICALS,INC./RIDGEFIELD-2012-DE-02547DE

PATIENT
  Age: 69 Year
  Sex: Female
  Weight: 84 kg

DRUGS (4)
  1. PRADAXA [Suspect]
     Indication: TRANSIENT ISCHAEMIC ATTACK
     Dosage: 300 MG
     Route: 048
     Dates: start: 201202
  2. RAMIPRIL [Concomitant]
     Dosage: 5 MG
     Route: 048
  3. RAMIPRIL 5/25 [Concomitant]
     Dosage: 1-0-0
     Route: 048
  4. SIMVASTATIN [Concomitant]
     Dosage: 20 MG
     Route: 048

REACTIONS (2)
  - Haemarthrosis [Recovered/Resolved]
  - Paraesthesia [Recovered/Resolved]
